FAERS Safety Report 17566991 (Version 7)
Quarter: 2020Q4

REPORT INFORMATION
  Report Type: Spontaneous
  Country: IT (occurrence: IT)
  Receive Date: 20200320
  Receipt Date: 20201208
  Transmission Date: 20210113
  Serious: Yes (Hospitalization, Other)
  Sender: FDA-Public Use
  Company Number: NVSC2020IT080190

PATIENT
  Age: 63 Year
  Sex: Male
  Weight: 70 kg

DRUGS (2)
  1. ADALIMUMAB [Suspect]
     Active Substance: ADALIMUMAB
     Indication: CROHN^S DISEASE
     Dosage: 80 MG, SINGLE DOSE
     Route: 058
     Dates: start: 20181215, end: 20181226
  2. INFLIXIMAB [Suspect]
     Active Substance: INFLIXIMAB
     Indication: PRODUCT USED FOR UNKNOWN INDICATION
     Dosage: UNK
     Route: 065

REACTIONS (10)
  - Drug hypersensitivity [Unknown]
  - Oedema peripheral [Recovered/Resolved]
  - Diarrhoea [Recovered/Resolved]
  - Atypical haemolytic uraemic syndrome [Recovered/Resolved]
  - Dyspnoea exertional [Recovered/Resolved]
  - Thrombotic microangiopathy [Recovered/Resolved]
  - Asthenia [Recovered/Resolved]
  - Crohn^s disease [Unknown]
  - Leukoencephalopathy [Recovered/Resolved]
  - Tachycardia [Recovered/Resolved]

NARRATIVE: CASE EVENT DATE: 20181226
